FAERS Safety Report 12770849 (Version 1)
Quarter: 2016Q3

REPORT INFORMATION
  Report Type: Spontaneous
  Country: US (occurrence: US)
  Receive Date: 20160922
  Receipt Date: 20160922
  Transmission Date: 20161109
  Serious: Yes (Other)
  Sender: FDA-Public Use
  Company Number: None

PATIENT

DRUGS (9)
  1. CLONAZEPAM. [Concomitant]
     Active Substance: CLONAZEPAM
  2. DILANTIN [Suspect]
     Active Substance: PHENYTOIN
     Indication: SEIZURE
     Dosage: 100MG X 3 MOUTH
     Route: 048
  3. QUETIAPINE. [Concomitant]
     Active Substance: QUETIAPINE
  4. PHENOBARBITAL. [Concomitant]
     Active Substance: PHENOBARBITAL
  5. AMLODIPINE BESYLATE. [Concomitant]
     Active Substance: AMLODIPINE BESYLATE
  6. PROMETHAZINE [Concomitant]
     Active Substance: PROMETHAZINE\PROMETHAZINE HYDROCHLORIDE
  7. MECLIZINE [Concomitant]
     Active Substance: MECLIZINE HYDROCHLORIDE
  8. DULOXETINE DR [Concomitant]
     Active Substance: DULOXETINE
  9. DILANTIN [Concomitant]
     Active Substance: PHENYTOIN

REACTIONS (4)
  - Dizziness [None]
  - Erectile dysfunction [None]
  - Gait disturbance [None]
  - Muscular weakness [None]

NARRATIVE: CASE EVENT DATE: 20160902
